FAERS Safety Report 6282825-3 (Version None)
Quarter: 2009Q3

REPORT INFORMATION
  Report Type: 
  Country: None (occurrence: None)
  Receive Date: 20090722
  Receipt Date: 20090722
  Transmission Date: 20100115
  Serious: Yes (Disabling, Other)
  Sender: FDA-Public Use
  Company Number: None

PATIENT
  Sex: Female
  Weight: 45.8133 kg

DRUGS (1)
  1. ALENDRONATE SODIUM [Suspect]
     Indication: OSTEOPOROSIS
     Dosage: 70MG WEEKLY PO, 5
     Route: 048

REACTIONS (5)
  - ARTHRALGIA [None]
  - BURSITIS [None]
  - FIBROMYALGIA [None]
  - MIGRAINE [None]
  - MUSCULOSKELETAL PAIN [None]
